FAERS Safety Report 7693474-4 (Version None)
Quarter: 2011Q3

REPORT INFORMATION
  Report Type: 
  Country: None (occurrence: None)
  Receive Date: 20110819
  Receipt Date: 20110819
  Transmission Date: 20111222
  Serious: Yes (Other)
  Sender: FDA-Public Use
  Company Number: None

PATIENT
  Age: 13 Year
  Sex: Male

DRUGS (1)
  1. DAYTRANA [Suspect]
     Dosage: DAILY FOR PAST MONTH OR TWO
     Route: 061
     Dates: start: 20110701, end: 20110815

REACTIONS (1)
  - APPLICATION SITE URTICARIA [None]
